FAERS Safety Report 7751245-4 (Version None)
Quarter: 2011Q3

REPORT INFORMATION
  Report Type: 
  Country: None (occurrence: None)
  Receive Date: 20110914
  Receipt Date: 20090505
  Transmission Date: 20111222
  Serious: Yes (Death)
  Sender: FDA-Public Use
  Company Number: PHHY2009NL67031

PATIENT
  Sex: Male

DRUGS (2)
  1. SANDOSTATIN LAR [Suspect]
     Indication: CARCINOID TUMOUR
     Dosage: 30 MG, ADMINISTERED ONCE PER 2 WEEKS
     Dates: start: 20071029
  2. SANDOSTATIN LAR [Suspect]
     Dosage: 30 MG, ADMINISTERED ONCE PER 2 WEEKS
     Dates: start: 20090420

REACTIONS (1)
  - DEATH [None]
